FAERS Safety Report 6627306-X (Version None)
Quarter: 2010Q1

REPORT INFORMATION
  Report Type: 
  Country: None (occurrence: None)
  Receive Date: 20100311
  Receipt Date: 20090327
  Transmission Date: 20100710
  Serious: No
  Sender: FDA-Public Use
  Company Number: A0773378A

PATIENT
  Age: 80 Year
  Sex: Female

DRUGS (2)
  1. NICORETTE [Suspect]
     Indication: DRUG USE FOR UNKNOWN INDICATION
     Route: 002
  2. NICORETTE [Suspect]
     Route: 002

REACTIONS (5)
  - BURNING SENSATION [None]
  - GINGIVAL PAIN [None]
  - INTENTIONAL DRUG MISUSE [None]
  - ORAL PAIN [None]
  - THERMAL BURN [None]
